FAERS Safety Report 17750744 (Version 1)
Quarter: 2020Q2

REPORT INFORMATION
  Report Type: Spontaneous
  Country: DE (occurrence: DE)
  Receive Date: 20200506
  Receipt Date: 20200506
  Transmission Date: 20200714
  Serious: Yes (Other)
  Sender: FDA-Public Use
  Company Number: NVSC2020DE099418

PATIENT
  Age: 44 Year
  Sex: Male
  Weight: 70 kg

DRUGS (15)
  1. DOXEPIN [Concomitant]
     Active Substance: DOXEPIN
     Dosage: 25 MEQ, QD
     Route: 065
     Dates: start: 20181120, end: 20181125
  2. RAMIPRIL. [Concomitant]
     Active Substance: RAMIPRIL
     Indication: PRODUCT USED FOR UNKNOWN INDICATION
     Dosage: 5 MG, UNKNOWN
     Route: 065
  3. DOXEPIN [Concomitant]
     Active Substance: DOXEPIN
     Dosage: 1 OT, QD
     Route: 065
     Dates: start: 20181120, end: 20181125
  4. VIGANTOL [Concomitant]
     Indication: PRODUCT USED FOR UNKNOWN INDICATION
     Dosage: 1000 IU, UNKNOWN
     Route: 065
     Dates: start: 20181025
  5. ESCITALOPRAM [Concomitant]
     Active Substance: ESCITALOPRAM OXALATE
     Dosage: 10 MG, QD
     Route: 048
     Dates: start: 20181205, end: 20190201
  6. DOXEPIN [Concomitant]
     Active Substance: DOXEPIN
     Indication: PRODUCT USED FOR UNKNOWN INDICATION
     Dosage: 50 MG, UNKNOWN
     Route: 065
     Dates: start: 20181018, end: 20181119
  7. ESCITALOPRAM [Suspect]
     Active Substance: ESCITALOPRAM OXALATE
     Indication: DEPRESSION
     Dosage: 20 MG, QD
     Route: 048
     Dates: start: 20190201
  8. IBUPROFEN. [Concomitant]
     Active Substance: IBUPROFEN
     Indication: PRODUCT USED FOR UNKNOWN INDICATION
     Dosage: 400 MG, UNKNOWN
     Route: 065
     Dates: start: 20181026
  9. DOXEPIN [Suspect]
     Active Substance: DOXEPIN
     Indication: DEPRESSION
     Dosage: 50 MG, QD
     Route: 048
     Dates: start: 20181217
  10. LEVOMETHADONE [Suspect]
     Active Substance: LEVOMETHADONE
     Indication: DRUG DEPENDENCE
     Dosage: 55 MG, QD
     Route: 048
     Dates: start: 20100318
  11. ESCITALOPRAM [Concomitant]
     Active Substance: ESCITALOPRAM OXALATE
     Indication: PRODUCT USED FOR UNKNOWN INDICATION
     Dosage: 20 MG, UNKNOWN
     Route: 048
     Dates: start: 20190527
  12. DOXEPIN [Concomitant]
     Active Substance: DOXEPIN
     Dosage: 50 MG, QD
     Route: 048
     Dates: start: 20181217
  13. PROMETHAZINE [Concomitant]
     Active Substance: PROMETHAZINE HYDROCHLORIDE
     Indication: PRODUCT USED FOR UNKNOWN INDICATION
     Dosage: 25 MG, UNKNOWN
     Route: 065
     Dates: start: 20181128
  14. ESCITALOPRAM [Concomitant]
     Active Substance: ESCITALOPRAM OXALATE
     Dosage: 5 MG, QD
     Route: 065
     Dates: start: 20181128, end: 20181204
  15. ESCITALOPRAM [Concomitant]
     Active Substance: ESCITALOPRAM OXALATE
     Dosage: UNK
     Route: 065
     Dates: start: 20190202, end: 20190430

REACTIONS (5)
  - Aspartate aminotransferase increased [Unknown]
  - Infection [Not Recovered/Not Resolved]
  - Hepatitis C [Not Recovered/Not Resolved]
  - Gamma-glutamyltransferase increased [Unknown]
  - Hepatitis C [Recovered/Resolved]

NARRATIVE: CASE EVENT DATE: 201909
